FAERS Safety Report 12313795 (Version 2)
Quarter: 2016Q2

REPORT INFORMATION
  Report Type: Report from Study
  Country: US (occurrence: US)
  Receive Date: 20160428
  Receipt Date: 20160506
  Transmission Date: 20160815
  Serious: Yes (Hospitalization, Other)
  Sender: FDA-Public Use
  Company Number: US-GILEAD-2016-0209237

PATIENT
  Age: 76 Year
  Sex: Female
  Weight: 63 kg

DRUGS (16)
  1. ATORVASTATIN [Concomitant]
     Active Substance: ATORVASTATIN
  2. MELATONIN [Concomitant]
     Active Substance: MELATONIN
  3. TYLENOL [Concomitant]
     Active Substance: ACETAMINOPHEN
  4. TADALAFIL [Concomitant]
     Active Substance: TADALAFIL
  5. GUAIFENESIN. [Concomitant]
     Active Substance: GUAIFENESIN
  6. PANTOPRAZOLE [Concomitant]
     Active Substance: PANTOPRAZOLE SODIUM
  7. ANASTROZOLE. [Concomitant]
     Active Substance: ANASTROZOLE
  8. FERROUS SULFATE. [Concomitant]
     Active Substance: FERROUS SULFATE
  9. AMBRISENTAN [Suspect]
     Active Substance: AMBRISENTAN
     Indication: PULMONARY ARTERIAL HYPERTENSION
     Dosage: 5 MG, UNK
     Route: 065
     Dates: start: 20160309
  10. ADCIRCA [Concomitant]
     Active Substance: TADALAFIL
  11. BIOTIN [Concomitant]
     Active Substance: BIOTIN
  12. SENNA                              /00142201/ [Concomitant]
     Active Substance: SENNA LEAF
  13. ACETAMINOPHEN. [Concomitant]
     Active Substance: ACETAMINOPHEN
  14. DOCUSATE SODIUM. [Concomitant]
     Active Substance: DOCUSATE SODIUM
  15. HEPARIN [Concomitant]
     Active Substance: HEPARIN SODIUM
  16. MORPHINE [Concomitant]
     Active Substance: MORPHINE

REACTIONS (3)
  - Cardiac tamponade [Unknown]
  - Cardiac failure congestive [Unknown]
  - Peripheral swelling [Unknown]
